FAERS Safety Report 6843982-0 (Version None)
Quarter: 2010Q3

REPORT INFORMATION
  Report Type: 
  Country: None (occurrence: None)
  Receive Date: 20100714
  Receipt Date: 20100714
  Transmission Date: 20110219
  Serious: Yes (Hospitalization)
  Sender: FDA-Public Use
  Company Number: None

PATIENT
  Age: 73 Year
  Sex: Female
  Weight: 66 kg

DRUGS (9)
  1. PHENYTOIN [Suspect]
     Indication: CONVULSION PROPHYLAXIS
     Dosage: 100 MG/300 MG QAM QHS PO
     Route: 048
  2. ASPIRIN [Concomitant]
  3. ALLOPURINOL [Concomitant]
  4. CALCIUM + VITAMIN D [Concomitant]
  5. CYANOCOBALAMIN [Concomitant]
  6. DILTIAZEM [Concomitant]
  7. FUROSEMIDE [Concomitant]
  8. PHENYTOIN [Concomitant]
  9. SIMVASTATIN [Concomitant]

REACTIONS (8)
  - ASTHENIA [None]
  - ATAXIA [None]
  - BALANCE DISORDER [None]
  - BLOOD ALBUMIN DECREASED [None]
  - HYPERREFLEXIA [None]
  - NYSTAGMUS [None]
  - THERAPEUTIC AGENT TOXICITY [None]
  - TREMOR [None]
